FAERS Safety Report 5001759-5 (Version None)
Quarter: 2006Q2

REPORT INFORMATION
  Report Type: 
  Country: None (occurrence: None)
  Receive Date: 20060512
  Receipt Date: 20060512
  Transmission Date: 20061013
  Serious: Yes (Death)
  Sender: FDA-Public Use
  Company Number: None

PATIENT
  Age: 36 Year
  Sex: Female
  Weight: 90.7194 kg

DRUGS (1)
  1. METHADONE 10 MG [Suspect]
     Indication: INTERVERTEBRAL DISC PROTRUSION
     Dosage: 1 PILL   Q 6-8 HRS   PO
     Route: 048
     Dates: start: 20021201, end: 20030901

REACTIONS (1)
  - DRUG TOXICITY [None]
